FAERS Safety Report 9435754 (Version 1)
Quarter: 2013Q3

REPORT INFORMATION
  Report Type: Spontaneous
  Country: PT (occurrence: PT)
  Receive Date: 20130801
  Receipt Date: 20130801
  Transmission Date: 20140515
  Serious: Yes (Death, Hospitalization)
  Sender: FDA-Public Use
  Company Number: PT-JNJFOC-20130714950

PATIENT
  Age: 46 Year
  Sex: Female

DRUGS (8)
  1. DOXORUBICIN [Suspect]
     Indication: DIFFUSE LARGE B-CELL LYMPHOMA
     Dosage: 6 CYCLES COMPLETED
     Route: 042
  2. VINCRISTINE [Suspect]
     Indication: DIFFUSE LARGE B-CELL LYMPHOMA
     Dosage: 6 CYCLES COMPLETED
     Route: 065
  3. PREDNISOLONE [Suspect]
     Indication: DIFFUSE LARGE B-CELL LYMPHOMA
     Dosage: 6 CYCLES COMPLETED
     Route: 065
  4. CYCLOPHOSPHAMIDE [Suspect]
     Indication: DIFFUSE LARGE B-CELL LYMPHOMA
     Dosage: 6 CYCLES COMPLETED
     Route: 065
  5. LAMIVUDINE [Concomitant]
     Indication: HIV INFECTION
     Route: 065
  6. RALTEGRAVIR [Concomitant]
     Indication: HIV INFECTION
     Route: 065
  7. RITONAVIR [Concomitant]
     Indication: HIV INFECTION
     Route: 065
  8. DARUNAVIR [Concomitant]
     Indication: HIV INFECTION
     Route: 065

REACTIONS (2)
  - Hepatitis acute [Fatal]
  - Hepatitis B [Not Recovered/Not Resolved]
